FAERS Safety Report 6097630-0 (Version None)
Quarter: 2009Q1

REPORT INFORMATION
  Report Type: 
  Country: None (occurrence: None)
  Receive Date: 20090225
  Receipt Date: 20090225
  Transmission Date: 20090719
  Serious: Yes (Other)
  Sender: FDA-Public Use
  Company Number: None

PATIENT
  Age: 44 Year
  Sex: Male
  Weight: 131.5431 kg

DRUGS (1)
  1. AMOXICILLIN [Suspect]
     Indication: DENTAL IMPLANTATION
     Dosage: 1TABLET EVERY 6 HRS DENTAL
     Route: 004
     Dates: start: 20090213, end: 20090219

REACTIONS (6)
  - ABDOMINAL PAIN UPPER [None]
  - DIARRHOEA [None]
  - HOT FLUSH [None]
  - INFLUENZA LIKE ILLNESS [None]
  - PRURITUS GENERALISED [None]
  - URTICARIA [None]
